FAERS Safety Report 22073890 (Version 2)
Quarter: 2023Q2

REPORT INFORMATION
  Report Type: Spontaneous
  Country: BR (occurrence: None)
  Receive Date: 20230308
  Receipt Date: 20230524
  Transmission Date: 20230722
  Serious: Yes (Other)
  Sender: FDA-Public Use
  Company Number: BR-Merck Healthcare KGaA-9386991

PATIENT
  Age: 36 Year
  Sex: Female

DRUGS (3)
  1. GLIFAGE [Suspect]
     Active Substance: METFORMIN HYDROCHLORIDE
     Indication: Polycystic ovaries
     Route: 048
     Dates: start: 2019, end: 202101
  2. GLIFAGE [Suspect]
     Active Substance: METFORMIN HYDROCHLORIDE
     Indication: Gestational diabetes
     Route: 048
     Dates: start: 202101, end: 202110
  3. GLIFAGE [Suspect]
     Active Substance: METFORMIN HYDROCHLORIDE
     Route: 048
     Dates: start: 202202, end: 202211

REACTIONS (6)
  - Amniotic fluid volume increased [Recovered/Resolved]
  - Amniotic fluid volume decreased [Recovered/Resolved]
  - Live birth [Recovered/Resolved]
  - Maternal exposure during breast feeding [Unknown]
  - Maternal exposure during pregnancy [Recovered/Resolved]
  - Off label use [Unknown]

NARRATIVE: CASE EVENT DATE: 20210701
